FAERS Safety Report 11695810 (Version 1)
Quarter: 2015Q4

REPORT INFORMATION
  Report Type: Spontaneous
  Country: US (occurrence: None)
  Receive Date: 20151103
  Receipt Date: 20151103
  Transmission Date: 20160304
  Serious: No
  Sender: FDA-Public Use
  Company Number: None

PATIENT
  Age: 53 Day
  Sex: Female
  Weight: 76.2 kg

DRUGS (5)
  1. XANAX [Concomitant]
     Active Substance: ALPRAZOLAM
  2. SIMVASTATIN TAB [Suspect]
     Active Substance: SIMVASTATIN
     Route: 048
     Dates: start: 20151023, end: 20151101
  3. NORFLEX [Concomitant]
     Active Substance: ORPHENADRINE CITRATE
  4. SEROQUEL [Concomitant]
     Active Substance: QUETIAPINE FUMARATE
  5. ZOLOFT [Concomitant]
     Active Substance: SERTRALINE HYDROCHLORIDE

REACTIONS (2)
  - Somnolence [None]
  - Dizziness [None]

NARRATIVE: CASE EVENT DATE: 20151102
